FAERS Safety Report 8054390-1 (Version None)
Quarter: 2012Q1

REPORT INFORMATION
  Report Type: 
  Country: None (occurrence: None)
  Receive Date: 20120118
  Receipt Date: 20120116
  Transmission Date: 20120608
  Serious: Yes (Other)
  Sender: FDA-Public Use
  Company Number: US-BAYER-2012-004992

PATIENT
  Age: 8 Year
  Sex: Male

DRUGS (3)
  1. MAGNEVIST [Suspect]
     Indication: NUCLEAR MAGNETIC RESONANCE IMAGING BRAIN
     Dosage: UNK, ONCE
     Dates: start: 20110801
  2. DMSA [Concomitant]
  3. ETHYLENEDIAMINE [Concomitant]
     Route: 042

REACTIONS (3)
  - RASH [None]
  - URINE ANALYSIS ABNORMAL [None]
  - BONE MARROW TOXICITY [None]
